FAERS Safety Report 23008989 (Version 2)
Quarter: 2023Q4

REPORT INFORMATION
  Report Type: Spontaneous
  Country: CN (occurrence: CN)
  Receive Date: 20230929
  Receipt Date: 20231020
  Transmission Date: 20240109
  Serious: Yes (Hospitalization, Other)
  Sender: FDA-Public Use
  Company Number: CN-SECURA BIO, INC.-2023-SECUR-CN000103

PATIENT

DRUGS (5)
  1. COPIKTRA [Suspect]
     Active Substance: DUVELISIB
     Indication: B-cell lymphoma
     Dosage: 25 MG, BID
     Route: 048
     Dates: start: 20230717, end: 20230718
  2. RITUXIMAB [Suspect]
     Active Substance: RITUXIMAB
     Indication: B-cell lymphoma
     Dosage: 0.1 G, Q4HR
     Route: 042
     Dates: start: 20230715, end: 20230715
  3. BENDAMUSTINE [Suspect]
     Active Substance: BENDAMUSTINE
     Indication: B-cell lymphoma
     Dosage: 125 MG, DAILY
     Route: 042
     Dates: start: 20230716, end: 20230717
  4. SODIUM CHLORIDE [Concomitant]
     Active Substance: SODIUM CHLORIDE
     Dosage: 90 ML, Q4HR
     Route: 042
     Dates: start: 20230715, end: 20230715
  5. SODIUM CHLORIDE [Concomitant]
     Active Substance: SODIUM CHLORIDE
     Dosage: 500 ML, DAILY
     Route: 042
     Dates: start: 20230716, end: 20230717

REACTIONS (2)
  - Bicytopenia [Recovering/Resolving]
  - Product use in unapproved indication [Unknown]

NARRATIVE: CASE EVENT DATE: 20230809
